FAERS Safety Report 12565827 (Version 2)
Quarter: 2016Q3

REPORT INFORMATION
  Report Type: Spontaneous
  Country: FI (occurrence: FI)
  Receive Date: 20160718
  Receipt Date: 20160816
  Transmission Date: 20161109
  Serious: Yes (Hospitalization)
  Sender: FDA-Public Use
  Company Number: PHHY2016FI087341

PATIENT
  Age: 77 Year
  Sex: Male

DRUGS (15)
  1. VOTRIENT [Suspect]
     Active Substance: PAZOPANIB HYDROCHLORIDE
     Dosage: 400 MG, QD
     Route: 048
     Dates: start: 20160510, end: 20160524
  2. BUFOMIX [Concomitant]
     Indication: PRODUCT USED FOR UNKNOWN INDICATION
     Dosage: (2 INTO 2) BID
     Route: 065
     Dates: start: 20160408
  3. PRIMPERAN [Concomitant]
     Active Substance: METOCLOPRAMIDE HYDROCHLORIDE
     Indication: PRODUCT USED FOR UNKNOWN INDICATION
     Dosage: 100 UNK, QD
     Route: 065
     Dates: start: 20160414
  4. PANADOL [Suspect]
     Active Substance: ACETAMINOPHEN
     Indication: MUSCULOSKELETAL PAIN
     Dosage: 1 G (1-3 TIMES A DAY)
     Route: 048
     Dates: start: 2016, end: 2016
  5. ATROVENT [Concomitant]
     Active Substance: IPRATROPIUM BROMIDE
     Indication: PRODUCT USED FOR UNKNOWN INDICATION
     Route: 065
  6. DUODART [Concomitant]
     Active Substance: DUTASTERIDE\TAMSULOSIN
     Indication: PROSTATIC DISORDER
     Dosage: UNK UNK, QD (1 INTO 1)
     Route: 048
     Dates: start: 20150807
  7. LACTULOS RATIOPHARARM [Concomitant]
     Indication: PRODUCT USED FOR UNKNOWN INDICATION
     Dosage: 15 ML, (1 INTO 1 TO 3)
     Route: 065
     Dates: start: 20160606
  8. OXYCONTIN [Concomitant]
     Active Substance: OXYCODONE HYDROCHLORIDE
     Indication: PRODUCT USED FOR UNKNOWN INDICATION
     Dosage: UNK UNK, BID (1 INTO 2)
     Route: 065
     Dates: start: 20160621
  9. ATARAX [Concomitant]
     Active Substance: HYDROXYZINE\HYDROXYZINE HYDROCHLORIDE
     Indication: PRODUCT USED FOR UNKNOWN INDICATION
     Dosage: (AS NEEDED) (1 INTO 25)
     Route: 065
     Dates: start: 20160606
  10. FLAVAMED [Concomitant]
     Active Substance: AMBROXOL
     Indication: PRODUCT USED FOR UNKNOWN INDICATION
     Dosage: UNK
     Route: 065
     Dates: start: 20150807
  11. DIOVAN [Concomitant]
     Active Substance: VALSARTAN
     Indication: HYPERTENSION
     Dosage: 160 MG, QD
     Route: 048
     Dates: start: 20150807, end: 2016
  12. OXYNORM [Concomitant]
     Active Substance: OXYCODONE HYDROCHLORIDE
     Indication: PRODUCT USED FOR UNKNOWN INDICATION
     Dosage: (1 INTO 25 AS NEEDED)
     Route: 065
     Dates: start: 20160414
  13. VOTRIENT [Suspect]
     Active Substance: PAZOPANIB HYDROCHLORIDE
     Indication: RENAL CANCER
     Dosage: 800 MG, QD
     Route: 048
     Dates: start: 20160421, end: 20160509
  14. AMLODIPINE [Concomitant]
     Active Substance: AMLODIPINE BESYLATE
     Indication: HYPERTENSION
     Dosage: 5 MG, QD
     Route: 048
     Dates: start: 20150807, end: 2016
  15. INNOHEP [Concomitant]
     Active Substance: TINZAPARIN SODIUM
     Indication: PULMONARY EMBOLISM
     Dosage: 10000 (ANTI-FACTOR XA IU) QD
     Route: 058
     Dates: start: 20160329

REACTIONS (10)
  - Alanine aminotransferase increased [Recovered/Resolved]
  - International normalised ratio decreased [Unknown]
  - Blood alkaline phosphatase increased [Recovered/Resolved]
  - Hepatic enzyme increased [Recovered/Resolved]
  - Pruritus [Unknown]
  - Fatigue [Unknown]
  - Jaundice [Recovered/Resolved]
  - Aspartate aminotransferase increased [Recovered/Resolved]
  - Faeces discoloured [Unknown]
  - Blood bilirubin increased [Recovered/Resolved]

NARRATIVE: CASE EVENT DATE: 2016
